FAERS Safety Report 24293528 (Version 1)
Quarter: 2024Q3

REPORT INFORMATION
  Report Type: Spontaneous
  Country: US (occurrence: None)
  Receive Date: 20240906
  Receipt Date: 20240906
  Transmission Date: 20241017
  Serious: No
  Sender: DOMPE FARMACEUTICI
  Company Number: US-FARMAPROD-202308-202401-0253

PATIENT
  Age: 70 Year
  Sex: Male

DRUGS (25)
  1. OXERVATE [Suspect]
     Active Substance: CENEGERMIN-BKBJ
     Indication: Neurotrophic keratopathy
     Route: 047
     Dates: start: 20231129
  2. SODIUM BICARBONATE [Concomitant]
     Active Substance: SODIUM BICARBONATE
  3. ABACAVIR [Concomitant]
     Active Substance: ABACAVIR
  4. HYDRALAZINE HCL [Concomitant]
     Active Substance: HYDRALAZINE HYDROCHLORIDE
  5. BRILINTA [Concomitant]
     Active Substance: TICAGRELOR
  6. NIACIN [Concomitant]
     Active Substance: NIACIN
  7. DICLOFENAC SODIUM [Concomitant]
     Active Substance: DICLOFENAC\DICLOFENAC SODIUM
  8. MORPHINE SULFATE [Concomitant]
     Active Substance: MORPHINE SULFATE
  9. OXYCODONE HYDROCHLORIDE [Concomitant]
     Active Substance: OXYCODONE HYDROCHLORIDE
     Dosage: 12 HOURS
  10. ACYCLOVIR [Concomitant]
     Active Substance: ACYCLOVIR
  11. TESTOSTERONE [Concomitant]
     Active Substance: TESTOSTERONE
     Dosage: 1.25G-1.62
  12. TRAZODONE HCL [Concomitant]
     Active Substance: TRAZODONE HYDROCHLORIDE
  13. LYRICA [Concomitant]
     Active Substance: PREGABALIN
  14. CYMBALTA [Concomitant]
     Active Substance: DULOXETINE HYDROCHLORIDE
  15. GABAPENTIN [Concomitant]
     Active Substance: GABAPENTIN
  16. LAMIVUDINE-ZIDOVUDINE [Concomitant]
  17. ASPIRIN [Concomitant]
     Active Substance: ASPIRIN
  18. CYCLOBENZAPRINE HYDROCHLORIDE [Concomitant]
     Active Substance: CYCLOBENZAPRINE HYDROCHLORIDE
  19. TOPROL XL [Concomitant]
     Active Substance: METOPROLOL SUCCINATE
     Dosage: EXTENDED RELEASE
  20. PRAVASTATIN SODIUM [Concomitant]
     Active Substance: PRAVASTATIN SODIUM
  21. RESTASIS [Concomitant]
     Active Substance: CYCLOSPORINE
  22. DOXAZOSIN [Concomitant]
     Active Substance: DOXAZOSIN MESYLATE
  23. LIDOCAINE [Concomitant]
     Active Substance: LIDOCAINE
  24. REFRESH CLASSIC [Concomitant]
     Active Substance: POLYVINYL ALCOHOL\POVIDONE
  25. GENTEAL MILD [Concomitant]
     Active Substance: HYPROMELLOSE 2910 (4000 MPA.S)

REACTIONS (2)
  - Visual impairment [Unknown]
  - Therapy interrupted [Unknown]

NARRATIVE: CASE EVENT DATE: 20240101
